FAERS Safety Report 7689442-9 (Version None)
Quarter: 2011Q3

REPORT INFORMATION
  Report Type: 
  Country: None (occurrence: None)
  Receive Date: 20110817
  Receipt Date: 20110809
  Transmission Date: 20111222
  Serious: Yes (Other)
  Sender: FDA-Public Use
  Company Number: US-BAYER-200941243NA

PATIENT
  Age: 46 Year
  Sex: Male
  Weight: 98 kg

DRUGS (20)
  1. METFORMIN [Concomitant]
  2. FOLATE SODIUM [Concomitant]
  3. ALBUTEROL SULFATE AUTOHALER [Concomitant]
  4. AMLODIPINE [Concomitant]
  5. ATORVASTATIN [Concomitant]
     Dosage: 40 MG, HS
     Route: 048
  6. HYDROCHLOROTHIAZIDE [Concomitant]
     Route: 048
  7. TRASYLOL [Suspect]
     Indication: CORONARY ARTERY BYPASS
     Dosage: UNK
     Route: 042
     Dates: start: 20030613
  8. ISORDIL [Concomitant]
     Dosage: 40 MG, TID
     Route: 048
  9. ENALAPRIL MALEATE [Concomitant]
     Dosage: 20 MG, BID
     Route: 048
  10. LESCOL [Concomitant]
     Dosage: 40 MG, HS
     Route: 048
  11. TRASYLOL [Suspect]
  12. METOPROLOL TARTRATE [Concomitant]
     Dosage: 200 MG, BID
     Route: 048
  13. PLAVIX [Concomitant]
     Dosage: 75 MG, QD
     Route: 048
  14. NITROGLYCERIN [Concomitant]
     Dosage: 0.4 MG, PRN
     Route: 060
  15. TRAZODONE HCL [Concomitant]
     Dosage: 100 MG, QD
     Route: 048
  16. ALLEGRA [Concomitant]
     Dosage: 100 MG, UNK
     Route: 048
  17. LASIX [Concomitant]
     Dosage: 40 MG, BID
     Route: 048
  18. GLYBURIDE [Concomitant]
     Dosage: 2.5 MG, QD
     Route: 048
  19. ACETYLSALICYLIC ACID SRT [Concomitant]
     Dosage: 325 MG, QD
     Route: 048
  20. PAXIL [Concomitant]
     Dosage: 20 MG, QD
     Route: 048

REACTIONS (12)
  - EMOTIONAL DISTRESS [None]
  - RENAL IMPAIRMENT [None]
  - ANHEDONIA [None]
  - RENAL DISORDER [None]
  - FEAR [None]
  - PAIN [None]
  - RENAL FAILURE [None]
  - UNEVALUABLE EVENT [None]
  - RENAL INJURY [None]
  - STRESS [None]
  - ANXIETY [None]
  - INJURY [None]
